FAERS Safety Report 5273315-5 (Version None)
Quarter: 2007Q1

REPORT INFORMATION
  Report Type: 
  Country: None (occurrence: None)
  Receive Date: 20070319
  Receipt Date: 20070307
  Transmission Date: 20070707
  Serious: Yes (Other)
  Sender: FDA-Public Use
  Company Number: 2007SP001149

PATIENT
  Age: 31 Year
  Sex: Female

DRUGS (2)
  1. INTRON A [Suspect]
     Dosage: SEE IMAGE
     Dates: end: 20061101
  2. INTRON A [Suspect]
     Dosage: SEE IMAGE
     Dates: start: 20060716

REACTIONS (6)
  - BRAIN NEOPLASM [None]
  - HEPATIC NEOPLASM [None]
  - LETHARGY [None]
  - MALIGNANT MELANOMA [None]
  - MIGRAINE [None]
  - NEOPLASM RECURRENCE [None]
